FAERS Safety Report 5897588-0 (Version None)
Quarter: 2008Q3

REPORT INFORMATION
  Report Type: 
  Country: None (occurrence: None)
  Receive Date: 20080829
  Receipt Date: 20080603
  Transmission Date: 20090109
  Serious: Yes (Hospitalization)
  Sender: FDA-Public Use
  Company Number: PHEH2008US05014

PATIENT
  Age: 76 Year
  Sex: Female

DRUGS (6)
  1. EXJADE [Suspect]
     Indication: IRON OVERLOAD
     Dosage: 250 MG, QD, ORAL
     Route: 048
  2. LASIX [Concomitant]
  3. JANUVIA (SITAGLIPTIN PHOSPHATE) [Concomitant]
  4. GLYBURIDE [Concomitant]
  5. LIPITOR [Concomitant]
  6. MEGACE [Concomitant]

REACTIONS (1)
  - THROMBOCYTOPENIA [None]
